FAERS Safety Report 9687597 (Version 1)
Quarter: 2013Q4

REPORT INFORMATION
  Report Type: Spontaneous
  Country: US (occurrence: US)
  Receive Date: 20131114
  Receipt Date: 20131114
  Transmission Date: 20140711
  Serious: Yes (Other)
  Sender: FDA-Public Use
  Company Number: US-AMGEN-USASP2013079718

PATIENT
  Age: 45 Year
  Sex: Female
  Weight: 92.97 kg

DRUGS (2)
  1. ENBREL [Suspect]
     Indication: PRODUCT USED FOR UNKNOWN INDICATION
     Dosage: 50 MG, QWK
     Route: 058
  2. TRAMADOL HCL [Concomitant]
     Dosage: 50 MG, UNK

REACTIONS (6)
  - Aphasia [Unknown]
  - Daydreaming [Unknown]
  - Memory impairment [Unknown]
  - Skin discolouration [Unknown]
  - Pruritus [Unknown]
  - Paraesthesia [Unknown]
